FAERS Safety Report 12687252 (Version 1)
Quarter: 2016Q3

REPORT INFORMATION
  Report Type: Report from Study
  Country: US (occurrence: PL)
  Receive Date: 20160826
  Receipt Date: 20160826
  Transmission Date: 20161109
  Serious: Yes (Other)
  Sender: FDA-Public Use
  Company Number: US-CIPLA LTD.-2016US17533

PATIENT

DRUGS (6)
  1. DARUNAVIR [Suspect]
     Active Substance: DARUNAVIR
     Dosage: 600 MG, BID FROM DAY 1 TO DAY 21
     Route: 065
  2. RITONAVIR. [Suspect]
     Active Substance: RITONAVIR
     Dosage: 100 MG, BID FROM DAY 1 TO DAY 21
     Route: 065
  3. ARTEMETHER/LUMEFANTRINE [Suspect]
     Active Substance: ARTEMETHER\LUMEFANTRINE
     Dosage: 80/480 MG FROM DAY 8 TO 11 IN TREATMENT B
     Route: 065
  4. RITONAVIR. [Suspect]
     Active Substance: RITONAVIR
     Dosage: 100 MG, QD ON DAY 22 IN THE MORNING.
     Route: 065
  5. DARUNAVIR [Suspect]
     Active Substance: DARUNAVIR
     Dosage: 600 MG, QD ON DAY 22 IN THE MORNING
     Route: 065
  6. ARTEMETHER/LUMEFANTRINE [Suspect]
     Active Substance: ARTEMETHER\LUMEFANTRINE
     Dosage: 80/480 MG FOR 3 DAYS IN TREATMENT A
     Route: 065

REACTIONS (2)
  - Electrocardiogram QT prolonged [Unknown]
  - Drug interaction [Unknown]
